FAERS Safety Report 8315757 (Version 5)
Quarter: 2013Q2

REPORT INFORMATION
  Report Type: Spontaneous
  Country: DK (occurrence: DK)
  Receive Date: 20111229
  Receipt Date: 20130513
  Transmission Date: 20140414
  Serious: Yes (Disabling, Other)
  Sender: FDA-Public Use
  Company Number: DK-ASTRAZENECA-2011SE77214

PATIENT
  Age: 63 Year
  Sex: Female

DRUGS (5)
  1. LIDOKAIN ^SAD^ [Suspect]
     Indication: NERVE BLOCK
     Dosage: 100 MG, 5 ML WITH UNKNOWN FREQUENCY
     Route: 042
     Dates: start: 20100114, end: 20100114
  2. PROPOFOL [Suspect]
     Indication: GENERAL ANAESTHESIA
     Route: 042
     Dates: start: 20100114, end: 20100114
  3. NAROPIN [Suspect]
     Indication: NERVE BLOCK
     Dosage: 37.5 MG, 5 ML WITH UNKNOWN FREQUENCY
     Route: 042
     Dates: start: 20100114, end: 20100114
  4. FENTANYL [Suspect]
     Indication: GENERAL ANAESTHESIA
     Route: 042
     Dates: start: 20100114, end: 20100114
  5. METAOXEDRIN ^DAK^ [Concomitant]
     Indication: BLOOD PRESSURE DECREASED
     Dosage: 0.3 MG UNKNOWN
     Route: 042
     Dates: start: 20100114, end: 20100114

REACTIONS (21)
  - Suffocation feeling [Recovered/Resolved]
  - Speech disorder [Unknown]
  - VIIth nerve injury [Not Recovered/Not Resolved]
  - Vth nerve injury [Not Recovered/Not Resolved]
  - Muscular weakness [Not Recovered/Not Resolved]
  - Hyperaesthesia [Not Recovered/Not Resolved]
  - Headache [Not Recovered/Not Resolved]
  - Memory impairment [Not Recovered/Not Resolved]
  - Salivary hypersecretion [Recovered/Resolved]
  - Tongue paralysis [Unknown]
  - Choking sensation [Unknown]
  - Amnesia [Unknown]
  - Hypoaesthesia [Unknown]
  - Facial neuralgia [Unknown]
  - Tendon injury [Unknown]
  - Tongue paralysis [Unknown]
  - Posture abnormal [Unknown]
  - Musculoskeletal discomfort [Unknown]
  - Eyelid function disorder [Unknown]
  - Dyspnoea [Unknown]
  - Paraesthesia [Not Recovered/Not Resolved]
